FAERS Safety Report 25124560 (Version 1)
Quarter: 2025Q1

REPORT INFORMATION
  Report Type: Spontaneous
  Country: US (occurrence: None)
  Receive Date: 20250324
  Receipt Date: 20250324
  Transmission Date: 20250409
  Serious: No
  Sender: FDA-CTU
  Company Number: None

PATIENT
  Age: 20 Year
  Sex: Female
  Weight: 88.5 kg

DRUGS (1)
  1. EMSAM [Suspect]
     Active Substance: SELEGILINE
     Indication: Depression
     Dosage: 6 MG DAILY TRNSDERMAL ?
     Route: 062
     Dates: start: 20250319

REACTIONS (1)
  - Petechiae [None]

NARRATIVE: CASE EVENT DATE: 20250319
